FAERS Safety Report 8414479-1 (Version None)
Quarter: 2012Q2

REPORT INFORMATION
  Report Type: 
  Country: None (occurrence: None)
  Receive Date: 20120605
  Receipt Date: 20120523
  Transmission Date: 20120825
  Serious: No
  Sender: FDA-Public Use
  Company Number: US-ASTRAZENECA-2012SE28494

PATIENT
  Age: 48 Year
  Sex: Male

DRUGS (10)
  1. TRAMADOL HCL [Concomitant]
  2. NEXIUM [Suspect]
     Indication: GASTROOESOPHAGEAL REFLUX DISEASE
     Route: 048
  3. ATENOLOL [Concomitant]
  4. ATORVASTATIN CALCIUM [Concomitant]
  5. MECLIZINE [Concomitant]
  6. NEXIUM [Suspect]
     Indication: HIATUS HERNIA
     Route: 048
  7. LORASEPAN [Concomitant]
  8. LISINOPRIL AND HYDROCHLOROTHIAZIDE [Concomitant]
  9. PROMETHAZINE [Concomitant]
  10. VITAMIN D CAPSULES [Concomitant]

REACTIONS (6)
  - STRESS [None]
  - DRUG DOSE OMISSION [None]
  - GASTROOESOPHAGEAL REFLUX DISEASE [None]
  - APHAGIA [None]
  - OFF LABEL USE [None]
  - MALAISE [None]
